FAERS Safety Report 23076164 (Version 1)
Quarter: 2023Q4

REPORT INFORMATION
  Report Type: Spontaneous
  Country: CN (occurrence: CN)
  Receive Date: 20231017
  Receipt Date: 20231017
  Transmission Date: 20240109
  Serious: Yes (Hospitalization)
  Sender: FDA-Public Use
  Company Number: CN-Merck Healthcare KGaA-2023479477

PATIENT
  Age: 82 Year
  Sex: Male
  Weight: 71 kg

DRUGS (4)
  1. ERBITUX [Suspect]
     Active Substance: CETUXIMAB
     Indication: Tongue neoplasm malignant stage unspecified
     Dosage: 500 MG, DAILY
     Route: 041
     Dates: start: 20230901, end: 20230901
  2. ERBITUX [Suspect]
     Active Substance: CETUXIMAB
     Dosage: 300 MG, DAILY
     Route: 041
     Dates: start: 20230908, end: 20230908
  3. ERBITUX [Suspect]
     Active Substance: CETUXIMAB
     Dosage: 300 MG, DAILY
     Route: 041
     Dates: start: 20230915, end: 20230915
  4. PEMBROLIZUMAB [Suspect]
     Active Substance: PEMBROLIZUMAB
     Indication: Tongue neoplasm malignant stage unspecified
     Dosage: 200 MG, DAILY
     Route: 041
     Dates: start: 20230901, end: 20230901

REACTIONS (1)
  - Autoimmune hepatitis [Unknown]

NARRATIVE: CASE EVENT DATE: 20230921
